FAERS Safety Report 10741735 (Version 1)
Quarter: 2015Q1

REPORT INFORMATION
  Report Type: Spontaneous
  Country: US (occurrence: None)
  Receive Date: 20150123
  Receipt Date: 20150123
  Transmission Date: 20150721
  Serious: Yes (Death)
  Sender: FDA-Public Use
  Company Number: 2015COR00008

PATIENT
  Age: 86 Year
  Sex: Male

DRUGS (3)
  1. DEXTROMETHORPHAN [Suspect]
     Active Substance: DEXTROMETHORPHAN
  2. QUETIAPINE [Suspect]
     Active Substance: QUETIAPINE
  3. CITALOPRAM [Suspect]
     Active Substance: CITALOPRAM HYDROBROMIDE

REACTIONS (6)
  - Tachycardia [None]
  - Pneumonia aspiration [None]
  - Tremor [None]
  - Hyperreflexia [None]
  - Dystonia [None]
  - Delirium [None]
